FAERS Safety Report 13034543 (Version 1)
Quarter: 2016Q4

REPORT INFORMATION
  Report Type: Spontaneous
  Country: FR (occurrence: FR)
  Receive Date: 20161216
  Receipt Date: 20161216
  Transmission Date: 20170207
  Serious: Yes (Hospitalization)
  Sender: FDA-Public Use
  Company Number: FR-JNJFOC-20161211323

PATIENT
  Age: 50 Year
  Sex: Female

DRUGS (7)
  1. EPITOMAX [Suspect]
     Active Substance: TOPIRAMATE
     Indication: HEADACHE
     Route: 048
  2. ANAFRANIL [Suspect]
     Active Substance: CLOMIPRAMINE HYDROCHLORIDE
     Indication: HEADACHE
     Route: 048
     Dates: end: 20160725
  3. BIPROFENID [Suspect]
     Active Substance: KETOPROFEN
     Indication: HEADACHE
     Dosage: 2 OR 3 TABLETS PER DAY
     Route: 048
     Dates: end: 20160725
  4. EFFERALGAN [Suspect]
     Active Substance: ACETAMINOPHEN
     Indication: HEADACHE
     Dosage: 4 OR 5 TABLETS PER DAY
     Route: 048
     Dates: end: 20160725
  5. BIPROFENID [Suspect]
     Active Substance: KETOPROFEN
     Indication: HEADACHE
     Route: 048
  6. EPITOMAX [Suspect]
     Active Substance: TOPIRAMATE
     Indication: HEADACHE
     Route: 048
     Dates: end: 201607
  7. EFFERALGAN [Suspect]
     Active Substance: ACETAMINOPHEN
     Indication: HEADACHE
     Route: 048

REACTIONS (3)
  - Asthenia [Recovered/Resolved]
  - Drug dependence [Recovering/Resolving]
  - Medication overuse headache [Recovering/Resolving]
